FAERS Safety Report 20389249 (Version 1)
Quarter: 2022Q1

REPORT INFORMATION
  Report Type: Spontaneous
  Country: PK (occurrence: PK)
  Receive Date: 20220128
  Receipt Date: 20220128
  Transmission Date: 20220423
  Serious: Yes (Other)
  Sender: FDA-Public Use
  Company Number: PK-LUPIN PHARMACEUTICALS INC.-2022-01027

PATIENT
  Age: 63 Year
  Sex: Male

DRUGS (1)
  1. METHYLPREDNISOLONE [Suspect]
     Active Substance: METHYLPREDNISOLONE
     Indication: Opsoclonus myoclonus
     Dosage: 1 GRAM, QD
     Route: 042

REACTIONS (2)
  - Therapy non-responder [Unknown]
  - Off label use [None]
